FAERS Safety Report 6147622-8 (Version None)
Quarter: 2009Q2

REPORT INFORMATION
  Report Type: 
  Country: None (occurrence: None)
  Receive Date: 20090408
  Receipt Date: 20090401
  Transmission Date: 20091009
  Serious: Yes (Other)
  Sender: FDA-Public Use
  Company Number: US-JNJFOC-20090400717

PATIENT
  Sex: Female
  Weight: 77.11 kg

DRUGS (2)
  1. TOPAMAX [Suspect]
     Dosage: 50 MG TO 100 MG
     Route: 048
  2. TOPAMAX [Suspect]
     Indication: FIBROMYALGIA
     Route: 048

REACTIONS (2)
  - DEAFNESS [None]
  - SOMNOLENCE [None]
